FAERS Safety Report 16387774 (Version 1)
Quarter: 2019Q2

REPORT INFORMATION
  Report Type: Spontaneous
  Country: US (occurrence: US)
  Receive Date: 20190604
  Receipt Date: 20190604
  Transmission Date: 20190711
  Serious: No
  Sender: FDA-Public Use
  Company Number: US-ALLERGAN-1848642US

PATIENT
  Sex: Male

DRUGS (1)
  1. PODOFILOX UNK [Suspect]
     Active Substance: PODOFILOX
     Indication: ANOGENITAL WARTS
     Dosage: UNKNOWN
     Route: 065

REACTIONS (1)
  - Drug ineffective [Unknown]
